FAERS Safety Report 4586785-2 (Version None)
Quarter: 2005Q1

REPORT INFORMATION
  Report Type: 
  Country: None (occurrence: None)
  Receive Date: 20050214
  Receipt Date: 20050207
  Transmission Date: 20050727
  Serious: Yes (Other)
  Sender: FDA-Public Use
  Company Number: 200410659BYL

PATIENT
  Age: 87 Year
  Sex: Male
  Weight: 60 kg

DRUGS (9)
  1. ASPIRIN [Suspect]
     Indication: THROMBOSIS PROPHYLAXIS
     Dosage: 100 MG, QD, ORAL
     Route: 048
     Dates: start: 20040427, end: 20040623
  2. CERNILTON [Concomitant]
  3. VASOLAN [Concomitant]
  4. SUNRYTHM [Concomitant]
  5. FLIVAS [Concomitant]
  6. LASIX [Concomitant]
  7. TOFRANIL [Concomitant]
  8. BUP-4 [Concomitant]
  9. HARNAL [Concomitant]

REACTIONS (1)
  - THROMBOCYTOPENIA [None]
